FAERS Safety Report 15186055 (Version 2)
Quarter: 2019Q1

REPORT INFORMATION
  Report Type: Report from Study
  Country: US (occurrence: US)
  Receive Date: 20180723
  Receipt Date: 20190130
  Transmission Date: 20190417
  Serious: No
  Sender: FDA-Public Use
  Company Number: US-EXELIXIS-CABO-18014276

PATIENT
  Age: 59 Year
  Sex: Male

DRUGS (1)
  1. CABOMETYX [Suspect]
     Active Substance: CABOZANTINIB S-MALATE
     Indication: RENAL CANCER
     Dosage: 60 MG, QD MORNING WITHOUT FOOD
     Dates: start: 20180504

REACTIONS (3)
  - Toothache [Unknown]
  - Oral pain [Unknown]
  - Asthenia [Unknown]

NARRATIVE: CASE EVENT DATE: 201805
